FAERS Safety Report 10051719 (Version 4)
Quarter: 2015Q4

REPORT INFORMATION
  Report Type: Report from Study
  Country: US (occurrence: US)
  Receive Date: 20140401
  Receipt Date: 20151112
  Transmission Date: 20160304
  Serious: Yes (Hospitalization, Other)
  Sender: FDA-Public Use
  Company Number: US-ABBVIE-13P-163-1070800-00

PATIENT
  Sex: Female

DRUGS (1)
  1. CREON [Suspect]
     Active Substance: PANCRELIPASE AMYLASE\PANCRELIPASE LIPASE\PANCRELIPASE PROTEASE
     Indication: PANCREATIC INSUFFICIENCY
     Route: 065

REACTIONS (19)
  - Gastrointestinal disorder [Unknown]
  - Diabetes mellitus [Unknown]
  - Hospitalisation [Unknown]
  - Type 1 diabetes mellitus [Unknown]
  - Asthenia [Recovering/Resolving]
  - Asthenia [Unknown]
  - Early retirement [Unknown]
  - Malaise [Unknown]
  - Pain [Unknown]
  - Infection [Recovering/Resolving]
  - Surgery [Unknown]
  - Multi-organ disorder [Unknown]
  - Weight increased [Recovering/Resolving]
  - Dyspepsia [Unknown]
  - Pancreatectomy [Unknown]
  - Malaise [Recovering/Resolving]
  - Weight decreased [Unknown]
  - Blood glucose increased [Unknown]
  - Neoplasm malignant [Unknown]

NARRATIVE: CASE EVENT DATE: 2013
